FAERS Safety Report 21342257 (Version 1)
Quarter: 2022Q3

REPORT INFORMATION
  Report Type: Spontaneous
  Country: US (occurrence: None)
  Receive Date: 20220916
  Receipt Date: 20220916
  Transmission Date: 20221026
  Serious: Yes (Death)
  Sender: FDA-Public Use
  Company Number: 2022A317242

PATIENT
  Age: 27790 Day
  Sex: Male

DRUGS (2)
  1. FARXIGA [Suspect]
     Active Substance: DAPAGLIFLOZIN PROPANEDIOL
     Indication: Cardiac disorder
     Route: 048
     Dates: start: 2022, end: 20220515
  2. FARXIGA [Suspect]
     Active Substance: DAPAGLIFLOZIN PROPANEDIOL
     Indication: Renal failure
     Route: 048
     Dates: start: 2022, end: 20220515

REACTIONS (1)
  - Death [Fatal]

NARRATIVE: CASE EVENT DATE: 20220515
